FAERS Safety Report 8181096-0 (Version None)
Quarter: 2012Q1

REPORT INFORMATION
  Report Type: 
  Country: None (occurrence: None)
  Receive Date: 20120302
  Receipt Date: 20120223
  Transmission Date: 20120608
  Serious: Yes (Other)
  Sender: FDA-Public Use
  Company Number: GB-MERCK-1202USA04088

PATIENT
  Age: 8 Year
  Sex: Female

DRUGS (3)
  1. VINCRISTINE SULFATE [Concomitant]
     Route: 042
  2. DECADRON [Suspect]
     Route: 048
  3. ASPARAGINASE (AS DRUG) [Suspect]
     Dosage: 1000 UNITS /M2 ON DAYS 4 AND 18
     Route: 030

REACTIONS (3)
  - HYPERTRIGLYCERIDAEMIA [None]
  - SUBCLAVIAN VEIN THROMBOSIS [None]
  - HYPERBILIRUBINAEMIA [None]
